FAERS Safety Report 5718626-1 (Version None)
Quarter: 2008Q2

REPORT INFORMATION
  Report Type: 
  Country: None (occurrence: None)
  Receive Date: 20080425
  Receipt Date: 20080415
  Transmission Date: 20081010
  Serious: Yes (Other)
  Sender: FDA-Public Use
  Company Number: US-PFIZER INC-2008031906

PATIENT
  Sex: Female
  Weight: 108.9 kg

DRUGS (5)
  1. CHANTIX [Suspect]
     Indication: SMOKING CESSATION THERAPY
     Dates: start: 20080101, end: 20080404
  2. IBUPROFEN [Concomitant]
     Indication: ARTHRITIS
  3. LEVOTHYROXINE SODIUM [Concomitant]
     Indication: HYPOTHYROIDISM
  4. LOVASTATIN [Concomitant]
  5. ALBUTEROL [Concomitant]

REACTIONS (3)
  - DRUG HYPERSENSITIVITY [None]
  - PHLEBITIS SUPERFICIAL [None]
  - RASH [None]
